FAERS Safety Report 15527026 (Version 1)
Quarter: 2018Q4

REPORT INFORMATION
  Report Type: Spontaneous
  Country: GB (occurrence: GB)
  Receive Date: 20181018
  Receipt Date: 20181018
  Transmission Date: 20190205
  Serious: Yes (Life-Threatening, Other)
  Sender: FDA-Public Use
  Company Number: GB-DEXPHARM-20180792

PATIENT
  Age: 22 Year
  Sex: Female
  Weight: 59 kg

DRUGS (3)
  1. OMEPRAZOLE. [Suspect]
     Active Substance: OMEPRAZOLE
     Dosage: USE AS DIRECTED
     Dates: start: 20180830
  2. DEPO-PROVERA [Suspect]
     Active Substance: MEDROXYPROGESTERONE ACETATE
     Dosage: USE AS DIRECTED
     Dates: start: 20180504
  3. FOLIC ACID. [Suspect]
     Active Substance: FOLIC ACID
     Dosage: USE AS DIRECTED
     Dates: start: 20180308

REACTIONS (4)
  - Agitation [Recovered/Resolved]
  - Nausea [Recovered/Resolved]
  - Obstructive airways disorder [Recovered/Resolved]
  - Hallucination, visual [Recovered/Resolved]

NARRATIVE: CASE EVENT DATE: 20180925
